FAERS Safety Report 4299104-6 (Version None)
Quarter: 2004Q1

REPORT INFORMATION
  Report Type: 
  Country: None (occurrence: None)
  Receive Date: 20040217
  Receipt Date: 20040210
  Transmission Date: 20041129
  Serious: Yes (Hospitalization, Other)
  Sender: FDA-Public Use
  Company Number: FRWYE571410FEB04

PATIENT
  Age: 52 Year
  Sex: Male

DRUGS (2)
  1. OXAZEPAM [Suspect]
     Dosage: SEVERAL TABLETS OF 10MG ORAL
     Route: 048
     Dates: start: 20000625, end: 20000625
  2. ALCOHOL (ETHANOL, 0) [Suspect]
     Dosage: ORAL
     Route: 048
     Dates: start: 20000625, end: 20000625

REACTIONS (7)
  - ALCOHOL POISONING [None]
  - ASPARTATE AMINOTRANSFERASE INCREASED [None]
  - BLOOD PRESSURE DIASTOLIC INCREASED [None]
  - BLOOD PRESSURE SYSTOLIC INCREASED [None]
  - FALL [None]
  - GAMMA-GLUTAMYLTRANSFERASE INCREASED [None]
  - INTENTIONAL OVERDOSE [None]
